FAERS Safety Report 15835243 (Version 2)
Quarter: 2019Q2

REPORT INFORMATION
  Report Type: Report from Study
  Country: NL (occurrence: NL)
  Receive Date: 20190116
  Receipt Date: 20190407
  Transmission Date: 20190711
  Serious: Yes (Death)
  Sender: FDA-Public Use
  Company Number: NL-BIOGEN-2019BI00684188

PATIENT
  Age: 61 Year
  Sex: Female

DRUGS (1)
  1. FAMPYRA [Suspect]
     Active Substance: DALFAMPRIDINE
     Indication: GAIT DISTURBANCE
     Route: 050
     Dates: start: 20120816

REACTIONS (1)
  - Death [Fatal]

NARRATIVE: CASE EVENT DATE: 20181224
